FAERS Safety Report 19819300 (Version 2)
Quarter: 2021Q3

REPORT INFORMATION
  Report Type: Other
  Country: FI (occurrence: FI)
  Receive Date: 20210913
  Receipt Date: 20210921
  Transmission Date: 20211014
  Serious: Yes (Death, Other)
  Sender: FDA-Public Use
  Company Number: FI-ASPEN-GLO2021FI007255

PATIENT

DRUGS (2)
  1. ASA [Concomitant]
     Active Substance: ASPIRIN
     Indication: CEREBRAL VENOUS THROMBOSIS
     Dosage: UNK
     Route: 065
  2. DANAPAROID SODIUM [Suspect]
     Active Substance: DANAPAROID SODIUM
     Indication: CEREBRAL VENOUS THROMBOSIS
     Dosage: UNK
     Route: 065

REACTIONS (7)
  - Depressed level of consciousness [Unknown]
  - Pupils unequal [Unknown]
  - Haemorrhage [Fatal]
  - No adverse event [Unknown]
  - Brain oedema [Fatal]
  - Venous pressure increased [Fatal]
  - Drug ineffective [Fatal]
